FAERS Safety Report 24078919 (Version 3)
Quarter: 2024Q3

REPORT INFORMATION
  Report Type: Spontaneous
  Country: JP (occurrence: JP)
  Receive Date: 20240711
  Receipt Date: 20240905
  Transmission Date: 20241016
  Serious: Yes (Hospitalization)
  Sender: BOEHRINGER INGELHEIM
  Company Number: JP-NBI-2024-BI-037144

PATIENT
  Age: 73 Year
  Sex: Male

DRUGS (2)
  1. OFEV [Suspect]
     Active Substance: NINTEDANIB
     Indication: Idiopathic pulmonary fibrosis
     Dosage: MORNING AND EVENING
     Route: 048
     Dates: start: 20240612
  2. OFEV [Suspect]
     Active Substance: NINTEDANIB
     Dosage: MORNING AND EVENING
     Route: 048
     Dates: start: 20240702, end: 20240808

REACTIONS (7)
  - Pyrexia [Recovering/Resolving]
  - Physical deconditioning [Recovering/Resolving]
  - Faeces soft [Not Recovered/Not Resolved]
  - Cough [Not Recovered/Not Resolved]
  - Malaise [Recovering/Resolving]
  - Pyrexia [Recovering/Resolving]
  - Cough [Recovering/Resolving]
